FAERS Safety Report 19200665 (Version 1)
Quarter: 2021Q2

REPORT INFORMATION
  Report Type: Spontaneous
  Country: FR (occurrence: FR)
  Receive Date: 20210430
  Receipt Date: 20210430
  Transmission Date: 20210717
  Serious: Yes (Other)
  Sender: FDA-Public Use
  Company Number: FR-PFIZER INC-2021445893

PATIENT
  Age: 13 Year
  Sex: Male

DRUGS (3)
  1. CANNABIS [Suspect]
     Active Substance: CANNABIS SATIVA SUBSP. INDICA TOP
     Indication: DRUG ABUSE
     Route: 065
  2. TABACUM [Suspect]
     Active Substance: TOBACCO LEAF
     Indication: TOBACCO USER
     Dosage: UNK
     Route: 065
  3. LYRICA [Suspect]
     Active Substance: PREGABALIN
     Indication: DRUG ABUSE
     Dosage: 600 MG, 1X/DAY
     Route: 048
     Dates: start: 20110101

REACTIONS (7)
  - Drug abuse [Not Recovered/Not Resolved]
  - Anxiety [Recovering/Resolving]
  - Vertigo [Recovering/Resolving]
  - Aggression [Recovering/Resolving]
  - Off label use [Unknown]
  - Withdrawal syndrome [Recovering/Resolving]
  - Hyperhidrosis [Recovering/Resolving]
